FAERS Safety Report 10085813 (Version 3)
Quarter: 2014Q2

REPORT INFORMATION
  Report Type: Spontaneous
  Country: US (occurrence: US)
  Receive Date: 20140418
  Receipt Date: 20140604
  Transmission Date: 20141212
  Serious: Yes (Hospitalization, Other)
  Sender: FDA-Public Use
  Company Number: US-PFIZER INC-2014105510

PATIENT
  Age: 82 Year
  Sex: Male

DRUGS (13)
  1. SUTENT [Suspect]
     Indication: RENAL CANCER
     Dosage: 50 MG, CYCLIC (28-DAY REGIMEN)
     Route: 048
     Dates: start: 20140327, end: 20140410
  2. SODIUM BICARBONATE [Concomitant]
     Dosage: UNK
  3. CODEINE SULFATE [Concomitant]
     Dosage: UNK
  4. AMLODIPINE BESILATE/ATORVASTATIN CALCIUM [Concomitant]
     Dosage: UNK
  5. VITAMIN D3 [Concomitant]
     Dosage: 2000 IU, DAILY
  6. LANTUS [Concomitant]
     Dosage: 7 UNITS DAILY
  7. NORVASC [Concomitant]
     Dosage: 10 MG, IN THE MORNING
  8. CENTRUM SILVER [Concomitant]
     Dosage: DAILY
  9. PRAVASTATIN [Concomitant]
     Dosage: 40 MG, DAILY (1)
  10. ASPIRIN [Concomitant]
     Dosage: 81 MG, DAILY
  11. LORTAB [Concomitant]
     Indication: PAIN
     Dosage: 1 EVERY 4 HOURS, AS NEEDED
  12. LUMIGAN [Concomitant]
     Dosage: UNK
  13. VITAMIN B12 [Concomitant]
     Dosage: UNK

REACTIONS (11)
  - Pneumonia [Recovered/Resolved]
  - Asthenia [Recovering/Resolving]
  - Vomiting [Recovered/Resolved]
  - Blood pressure increased [Unknown]
  - Renal failure acute [Unknown]
  - Dehydration [Recovering/Resolving]
  - Decreased appetite [Unknown]
  - Weight decreased [Unknown]
  - Confusional state [Unknown]
  - Thrombocytopenia [Recovering/Resolving]
  - Nausea [Unknown]
